FAERS Safety Report 8437588-X (Version None)
Quarter: 2012Q2

REPORT INFORMATION
  Report Type: 
  Country: None (occurrence: None)
  Receive Date: 20120614
  Receipt Date: 20120412
  Transmission Date: 20120825
  Serious: Yes (Other)
  Sender: FDA-Public Use
  Company Number: US-AMGEN-USASP2012020430

PATIENT
  Age: 65 Year
  Sex: Male
  Weight: 68.481 kg

DRUGS (2)
  1. CISPLATIN [Concomitant]
  2. XGEVA [Suspect]
     Indication: PRODUCT USED FOR UNKNOWN INDICATION
     Dosage: 120 MG, UNK
     Route: 058
     Dates: start: 20120210, end: 20120210

REACTIONS (1)
  - HYPOCALCAEMIA [None]
